FAERS Safety Report 21000264 (Version 4)
Quarter: 2022Q3

REPORT INFORMATION
  Report Type: Spontaneous
  Country: US (occurrence: US)
  Receive Date: 20220623
  Receipt Date: 20220826
  Transmission Date: 20221027
  Serious: No
  Sender: FDA-Public Use
  Company Number: US-PFIZER INC-202200864304

PATIENT
  Age: 68 Year
  Sex: Female

DRUGS (4)
  1. IBRANCE [Suspect]
     Active Substance: PALBOCICLIB
     Indication: Breast cancer metastatic
     Dosage: 100 MG
     Dates: start: 20211213
  2. IBRANCE [Suspect]
     Active Substance: PALBOCICLIB
     Dosage: UNK
     Dates: start: 20220222
  3. IBRANCE [Suspect]
     Active Substance: PALBOCICLIB
     Dosage: 125 MG, ONE IN EVENING
     Route: 048
  4. ANASTROZOLE [Suspect]
     Active Substance: ANASTROZOLE
     Indication: Bladder prolapse
     Dosage: 1 MG

REACTIONS (20)
  - Pre-existing condition improved [Unknown]
  - Pollakiuria [Not Recovered/Not Resolved]
  - White blood cell count decreased [Unknown]
  - Red blood cell count decreased [Unknown]
  - Haemoglobin decreased [Unknown]
  - Haematocrit decreased [Unknown]
  - Mean cell volume increased [Unknown]
  - Mean cell haemoglobin increased [Unknown]
  - Mean cell haemoglobin concentration decreased [Unknown]
  - Red cell distribution width increased [Unknown]
  - Platelet count decreased [Unknown]
  - Neutrophil count decreased [Unknown]
  - Neutrophil percentage decreased [Unknown]
  - Basophil count increased [Unknown]
  - Pruritus [Unknown]
  - Somnolence [Unknown]
  - Fatigue [Unknown]
  - Asthenia [Unknown]
  - Scratch [Unknown]
  - Skin disorder [Unknown]

NARRATIVE: CASE EVENT DATE: 20220101
